FAERS Safety Report 24106973 (Version 1)
Quarter: 2024Q3

REPORT INFORMATION
  Report Type: Spontaneous
  Country: JP (occurrence: JP)
  Receive Date: 20240717
  Receipt Date: 20240717
  Transmission Date: 20241016
  Serious: Yes (Other)
  Sender: NOVARTIS
  Company Number: JP-002147023-NVSJ2024JP008460

PATIENT
  Age: 61 Year
  Sex: Female

DRUGS (3)
  1. COSENTYX [Suspect]
     Active Substance: SECUKINUMAB
     Indication: Palmoplantar pustulosis
     Dosage: UNK, 4W
     Route: 058
     Dates: start: 2020
  2. COSENTYX [Suspect]
     Active Substance: SECUKINUMAB
     Indication: Osteitis
  3. METHOTREXATE [Concomitant]
     Active Substance: METHOTREXATE
     Indication: Product used for unknown indication
     Dosage: UNK
     Route: 065

REACTIONS (2)
  - Tonsillitis [Recovering/Resolving]
  - Off label use [Unknown]
